FAERS Safety Report 9412867 (Version 3)
Quarter: 2014Q3

REPORT INFORMATION
  Report Type: Spontaneous
  Country: JP (occurrence: JP)
  Receive Date: 20130722
  Receipt Date: 20140925
  Transmission Date: 20150326
  Serious: Yes (Death)
  Sender: FDA-Public Use
  Company Number: PHHY2013JP076859

PATIENT
  Age: 83 Year
  Sex: Female

DRUGS (10)
  1. CEFTRIAXONE. [Suspect]
     Active Substance: CEFTRIAXONE
     Route: 042
  2. MEROPENEM. [Suspect]
     Active Substance: MEROPENEM
     Route: 042
  3. PREDNISOLONE. [Suspect]
     Active Substance: PREDNISOLONE
     Indication: STEVENS-JOHNSON SYNDROME
     Dosage: 30 MG, PER DAY
  4. CEFOZOPRAN [Concomitant]
     Active Substance: CEFOZOPRAN
  5. DEXAMETHASONE. [Suspect]
     Active Substance: DEXAMETHASONE
     Indication: TOXIC EPIDERMAL NECROLYSIS
     Dosage: 8 MG, PER DAY
  6. CORTICOSTEROIDS [Suspect]
     Active Substance: CORTICOSTEROID NOS
     Indication: RASH
  7. GLYCYRRHIZINATE POTASSIUM [Suspect]
     Active Substance: GLYCYRRHIZIN
  8. HYDROCORTISONE. [Suspect]
     Active Substance: HYDROCORTISONE
     Dosage: 500 MG, UNK
  9. FOSFOMYCIN [Concomitant]
     Active Substance: FOSFOMYCIN
  10. PIPERACILLIN [Suspect]
     Active Substance: PIPERACILLIN
     Route: 042

REACTIONS (8)
  - Skin exfoliation [Fatal]
  - Escherichia test positive [None]
  - Staphylococcus test positive [None]
  - Drug ineffective [Unknown]
  - Stevens-Johnson syndrome [Fatal]
  - Toxic epidermal necrolysis [Fatal]
  - Generalised oedema [Fatal]
  - Rash generalised [Fatal]
